FAERS Safety Report 4317888-5 (Version None)
Quarter: 2004Q1

REPORT INFORMATION
  Report Type: 
  Country: None (occurrence: None)
  Receive Date: 20040316
  Receipt Date: 20030910
  Transmission Date: 20041129
  Serious: Yes (Hospitalization)
  Sender: FDA-Public Use
  Company Number: WAES 0309USA01174

PATIENT
  Age: 49 Year
  Sex: Female
  Weight: 61 kg

DRUGS (18)
  1. [THERAPY UNSPECIFIED] [Concomitant]
     Dates: start: 19980101
  2. VICODIN [Concomitant]
  3. ELAVIL [Concomitant]
     Route: 048
     Dates: start: 20020121
  4. ANALGESIC OR ANESTHETIC (UNSPECIFIED) [Concomitant]
  5. ASPIRIN [Concomitant]
     Route: 048
  6. CALCIUM CARBONATE [Concomitant]
  7. PREMARIN [Concomitant]
     Dates: start: 19920101
  8. LASIX [Concomitant]
     Indication: OEDEMA PERIPHERAL
     Dates: start: 19840401
  9. NEURONTIN [Concomitant]
     Dates: start: 20010813, end: 20010901
  10. OXYCONTIN [Concomitant]
  11. PAXIL [Concomitant]
     Route: 048
  12. ACTONEL [Concomitant]
  13. VIOXX [Suspect]
     Indication: OSTEOARTHRITIS
     Route: 048
     Dates: start: 19990101, end: 20020601
  14. VIOXX [Suspect]
     Route: 048
     Dates: start: 20030301, end: 20030101
  15. VIOXX [Suspect]
     Indication: FIBROMYALGIA
     Route: 048
     Dates: start: 19990101, end: 20020601
  16. VIOXX [Suspect]
     Route: 048
     Dates: start: 20030301, end: 20030101
  17. VITAMIN E [Concomitant]
  18. VITAMINS (UNSPECIFIED) [Concomitant]

REACTIONS (36)
  - ABDOMINAL PAIN [None]
  - ANXIETY [None]
  - ARTHRALGIA [None]
  - BRONCHITIS [None]
  - BURSITIS [None]
  - CERVICOBRACHIAL SYNDROME [None]
  - CHRONIC OBSTRUCTIVE AIRWAYS DISEASE [None]
  - CONTUSION [None]
  - COUGH [None]
  - DEPRESSION [None]
  - EMOTIONAL DISORDER [None]
  - EXOSTOSIS [None]
  - FALL [None]
  - FATIGUE [None]
  - FEELING ABNORMAL [None]
  - FIBROMYALGIA [None]
  - GAIT DISTURBANCE [None]
  - INTERVERTEBRAL DISC PROTRUSION [None]
  - LOWER RESPIRATORY TRACT INFECTION [None]
  - MEMORY IMPAIRMENT [None]
  - MIGRAINE [None]
  - OEDEMA PERIPHERAL [None]
  - OSTEOPOROSIS [None]
  - PAIN IN EXTREMITY [None]
  - RADIUS FRACTURE [None]
  - RENAL DISORDER [None]
  - RENAL PAIN [None]
  - SINUSITIS [None]
  - SLEEP DISORDER [None]
  - SOMNOLENCE [None]
  - SPONDYLOSIS [None]
  - TENDONITIS [None]
  - TRANSIENT ISCHAEMIC ATTACK [None]
  - URINARY TRACT INFECTION [None]
  - VISUAL DISTURBANCE [None]
  - WEIGHT INCREASED [None]
